FAERS Safety Report 16059112 (Version 1)
Quarter: 2019Q1

REPORT INFORMATION
  Report Type: Spontaneous
  Country: JP (occurrence: JP)
  Receive Date: 20190311
  Receipt Date: 20190311
  Transmission Date: 20190418
  Serious: Yes (Other)
  Sender: FDA-Public Use
  Company Number: PHJP2019JP002859

PATIENT
  Sex: Female

DRUGS (1)
  1. TASIGNA [Suspect]
     Active Substance: NILOTINIB
     Indication: PRODUCT USED FOR UNKNOWN INDICATION
     Dosage: 300 MG, BID (2 DF IN MORNING AND 2 DF AT NIGHT)
     Route: 048

REACTIONS (2)
  - Hepatitis B [Unknown]
  - White blood cell count abnormal [Unknown]
